FAERS Safety Report 8421776-2 (Version None)
Quarter: 2012Q2

REPORT INFORMATION
  Report Type: 
  Country: None (occurrence: None)
  Receive Date: 20120608
  Receipt Date: 20120529
  Transmission Date: 20120825
  Serious: Yes (Disabling, Other)
  Sender: FDA-Public Use
  Company Number: US-ALLERGAN-1201899US

PATIENT
  Age: 53 Year
  Sex: Male

DRUGS (2)
  1. BOTULINUM TOXIN TYPE A [Suspect]
     Indication: MUSCLE SPASMS
     Dosage: UNK
     Route: 030
     Dates: start: 20111201, end: 20111201
  2. SYMBICORT [Suspect]
     Indication: DYSPNOEA

REACTIONS (3)
  - CHEST DISCOMFORT [None]
  - MUSCULAR WEAKNESS [None]
  - FINGER DEFORMITY [None]
